FAERS Safety Report 15176313 (Version 1)
Quarter: 2018Q3

REPORT INFORMATION
  Report Type: Report from Study
  Country: US (occurrence: US)
  Receive Date: 20180720
  Receipt Date: 20180720
  Transmission Date: 20181010
  Serious: Yes (Other)
  Sender: FDA-Public Use
  Company Number: US-AMGEN-USASL2018087242

PATIENT
  Age: 77 Year
  Sex: Male
  Weight: 61.22 kg

DRUGS (1)
  1. REPATHA [Suspect]
     Active Substance: EVOLOCUMAB
     Indication: BLOOD CHOLESTEROL INCREASED
     Dosage: 420 MG, QMO
     Route: 065
     Dates: start: 20180511

REACTIONS (22)
  - Feeling abnormal [Recovering/Resolving]
  - Dyspnoea [Recovering/Resolving]
  - Arthritis [Recovering/Resolving]
  - Nasal congestion [Recovering/Resolving]
  - Asthenia [Recovering/Resolving]
  - Rhinorrhoea [Recovering/Resolving]
  - Hypersensitivity [Recovering/Resolving]
  - Influenza like illness [Recovering/Resolving]
  - Secretion discharge [Recovering/Resolving]
  - Insomnia [Recovering/Resolving]
  - Bone pain [Recovering/Resolving]
  - Pollakiuria [Recovering/Resolving]
  - Dysuria [Recovering/Resolving]
  - Nasopharyngitis [Recovering/Resolving]
  - Balance disorder [Recovering/Resolving]
  - Liver function test increased [Unknown]
  - Hypersomnia [Recovering/Resolving]
  - Headache [Recovering/Resolving]
  - Cough [Recovering/Resolving]
  - Myalgia [Recovering/Resolving]
  - Sneezing [Recovering/Resolving]
  - Thyroid function test abnormal [Unknown]

NARRATIVE: CASE EVENT DATE: 2018
